FAERS Safety Report 9579159 (Version 1)
Quarter: 2013Q4

REPORT INFORMATION
  Report Type: Spontaneous
  Country: US (occurrence: US)
  Receive Date: 20131001
  Receipt Date: 20131001
  Transmission Date: 20140711
  Serious: No
  Sender: FDA-Public Use
  Company Number: US-AMGEN-USASP2013016578

PATIENT
  Sex: Male
  Weight: 102.4 kg

DRUGS (3)
  1. ENBREL [Suspect]
     Indication: PSORIATIC ARTHROPATHY
     Dosage: 50 MG, QWK
     Route: 058
  2. ATENOLOL [Concomitant]
     Dosage: 50 MG, UNK
  3. SIMVASTIN [Concomitant]
     Dosage: 80 MG, UNK

REACTIONS (1)
  - Drug ineffective [Unknown]
